FAERS Safety Report 7932233-1 (Version None)
Quarter: 2011Q4

REPORT INFORMATION
  Report Type: 
  Country: None (occurrence: None)
  Receive Date: 20111121
  Receipt Date: 20110119
  Transmission Date: 20120403
  Serious: Yes (Other)
  Sender: FDA-Public Use
  Company Number: US-AMGEN-USASP2011003594

PATIENT
  Sex: Female

DRUGS (3)
  1. LEVOTHYROXINE SODIUM [Concomitant]
  2. NORVASC [Concomitant]
  3. VECTIBIX [Suspect]
     Indication: COLORECTAL CANCER METASTATIC
     Dosage: UNK UNK, Q2WK
     Dates: start: 20100801

REACTIONS (4)
  - DERMATITIS ACNEIFORM [None]
  - RASH [None]
  - SKIN EXFOLIATION [None]
  - RASH ERYTHEMATOUS [None]
